FAERS Safety Report 13062599 (Version 1)
Quarter: 2016Q4

REPORT INFORMATION
  Report Type: Spontaneous
  Country: LT (occurrence: LT)
  Receive Date: 20161226
  Receipt Date: 20161226
  Transmission Date: 20170207
  Serious: Yes (Life-Threatening)
  Sender: FDA-Public Use
  Company Number: PHHY2016LT174540

PATIENT
  Age: 39 Year
  Sex: Female
  Weight: 78 kg

DRUGS (3)
  1. OMEP [Suspect]
     Active Substance: OMEPRAZOLE
     Indication: DRUG PROVOCATION TEST
     Route: 065
     Dates: start: 201605
  2. OMEP [Suspect]
     Active Substance: OMEPRAZOLE
     Dosage: 20 MG, (DOSE FOR PROVOCATION TSET 6 MG)
     Route: 048
     Dates: start: 20161208, end: 20161208
  3. OMEP [Suspect]
     Active Substance: OMEPRAZOLE
     Route: 065
     Dates: start: 201608

REACTIONS (9)
  - Blood pressure decreased [Recovered/Resolved]
  - Swelling [Recovered/Resolved]
  - Pruritus [Recovered/Resolved]
  - Erythema [Recovered/Resolved]
  - Dyspnoea [Recovered/Resolved]
  - Vomiting [Recovered/Resolved]
  - Anaphylactic reaction [Recovered/Resolved]
  - Pruritus [Recovered/Resolved]
  - Erythema [Recovered/Resolved]

NARRATIVE: CASE EVENT DATE: 20160801
